FAERS Safety Report 6518014-4 (Version None)
Quarter: 2009Q4

REPORT INFORMATION
  Report Type: 
  Country: None (occurrence: None)
  Receive Date: 20091224
  Receipt Date: 20091214
  Transmission Date: 20100525
  Serious: Yes (Hospitalization)
  Sender: FDA-Public Use
  Company Number: BR-BRISTOL-MYERS SQUIBB COMPANY-14904932

PATIENT
  Age: 83 Year
  Sex: Female

DRUGS (1)
  1. GLIFAGE XR [Suspect]
     Route: 048

REACTIONS (2)
  - DIABETES MELLITUS [None]
  - URINARY TRACT INFECTION [None]
